FAERS Safety Report 24684742 (Version 2)
Quarter: 2025Q1

REPORT INFORMATION
  Report Type: Spontaneous
  Country: JP (occurrence: JP)
  Receive Date: 20241202
  Receipt Date: 20250213
  Transmission Date: 20250408
  Serious: Yes (Hospitalization, Other)
  Sender: BRISTOL-MYERS SQUIBB COMPANY
  Company Number: JP-TAIHO-2024-011289

PATIENT
  Age: 76 Year
  Sex: Female

DRUGS (10)
  1. ABRAXANE [Suspect]
     Active Substance: PACLITAXEL
     Indication: Pancreatic carcinoma recurrent
     Route: 041
     Dates: start: 20240408, end: 20240415
  2. GEMCITABINE HYDROCHLORIDE [Suspect]
     Active Substance: GEMCITABINE HYDROCHLORIDE
     Indication: Pancreatic carcinoma recurrent
     Route: 041
     Dates: start: 20240408, end: 20240415
  3. NEXIUM [Concomitant]
     Active Substance: ESOMEPRAZOLE MAGNESIUM
     Indication: Product used for unknown indication
  4. PANCRELIPASE [Concomitant]
     Active Substance: PANCRELIPASE
     Indication: Product used for unknown indication
  5. DICLOFENAC SODIUM [Concomitant]
     Active Substance: DICLOFENAC SODIUM
     Indication: Product used for unknown indication
  6. OXYCODONE HYDROCHLORIDE [Concomitant]
     Active Substance: OXYCODONE HYDROCHLORIDE
     Indication: Product used for unknown indication
  7. OXYCODONE HYDROCHLORIDE [Concomitant]
     Active Substance: OXYCODONE HYDROCHLORIDE
     Indication: Product used for unknown indication
  8. FUROSEMIDE [Concomitant]
     Active Substance: FUROSEMIDE
     Indication: Product used for unknown indication
  9. SPIRONOLACTONE [Concomitant]
     Active Substance: SPIRONOLACTONE
     Indication: Product used for unknown indication
  10. ANAMORELIN HYDROCHLORIDE [Concomitant]
     Active Substance: ANAMORELIN HYDROCHLORIDE
     Indication: Product used for unknown indication

REACTIONS (1)
  - Liver abscess [Recovered/Resolved]

NARRATIVE: CASE EVENT DATE: 20240508
